FAERS Safety Report 7494653-1 (Version None)
Quarter: 2011Q2

REPORT INFORMATION
  Report Type: 
  Country: None (occurrence: None)
  Receive Date: 20110520
  Receipt Date: 20090618
  Transmission Date: 20111010
  Serious: Yes (Hospitalization, Other)
  Sender: FDA-Public Use
  Company Number: US-BAYER-200923842NA

PATIENT
  Age: 76 Year
  Sex: Male
  Weight: 77 kg

DRUGS (13)
  1. TRASYLOL [Suspect]
     Indication: CORONARY ARTERY BYPASS
     Dosage: TEST DOSE 1ML, LOADING DOSE 200ML PUMP PRIME FOLLOWED BY AN INFUSION AT 50ML/HR RATE.
     Route: 042
     Dates: start: 20051228, end: 20051228
  2. COREG [Concomitant]
     Dosage: 3.125 MG, BID
     Route: 048
  3. HEPARIN [Concomitant]
     Dosage: 5000 UNITS IRRIGATION
     Dates: start: 20051228, end: 20051228
  4. HEPARIN [Concomitant]
     Dosage: 10000 UNITS CHEST TUBE
     Dates: start: 20051228, end: 20051228
  5. HEPARIN [Concomitant]
     Dosage: 25,000 UNITS
     Route: 042
     Dates: start: 20051228
  6. ZOCOR [Concomitant]
     Dosage: 10 MG, QD
     Route: 048
     Dates: start: 19910101
  7. MANNITOL [Concomitant]
     Dosage: 12.5 GRAM
     Route: 042
     Dates: start: 20051228, end: 20051228
  8. NITROGLYCERIN [Concomitant]
     Dosage: AS NEEDED
  9. NITROGLYCERIN [Concomitant]
     Dosage: VARYING DOSES
     Route: 042
     Dates: start: 20051228
  10. DOBUTAMINE HYDROCHLORIDE [Concomitant]
     Dosage: 5.0/KG
     Route: 042
     Dates: start: 20051228, end: 20051229
  11. NORVASC [Concomitant]
     Indication: HYPERTENSION
     Dosage: 5 MG, QD
     Route: 048
  12. FENTANYL [Concomitant]
     Dosage: 30ML
     Route: 042
     Dates: start: 20051228, end: 20051228
  13. PROTAMINE SULFATE [Concomitant]
     Dosage: 250MG
     Route: 042
     Dates: start: 20051228, end: 20051228

REACTIONS (15)
  - ANXIETY [None]
  - UNEVALUABLE EVENT [None]
  - FEAR [None]
  - MYOCARDIAL INFARCTION [None]
  - RENAL FAILURE [None]
  - EMOTIONAL DISTRESS [None]
  - ANHEDONIA [None]
  - HEADACHE [None]
  - MULTI-ORGAN FAILURE [None]
  - PAIN [None]
  - RENAL IMPAIRMENT [None]
  - RENAL INJURY [None]
  - AMNESIA [None]
  - STRESS [None]
  - INJURY [None]
